FAERS Safety Report 4999681-3 (Version None)
Quarter: 2006Q2

REPORT INFORMATION
  Report Type: 
  Country: None (occurrence: None)
  Receive Date: 20060509
  Receipt Date: 20060427
  Transmission Date: 20061013
  Serious: Yes (Other)
  Sender: FDA-Public Use
  Company Number: 200611797BCC

PATIENT
  Sex: Female
  Weight: 68.0396 kg

DRUGS (4)
  1. NAPROXEN SODIUM [Suspect]
     Indication: PAIN
     Dosage: 220 MG, PRN, ORAL
     Route: 048
     Dates: start: 19980101, end: 20060301
  2. NEXIUM [Concomitant]
  3. LEXAPRO [Concomitant]
  4. TRAMADOL HCL [Concomitant]

REACTIONS (2)
  - DUODENAL POLYP [None]
  - ERYTHEMA [None]
